FAERS Safety Report 6245646-3 (Version None)
Quarter: 2009Q2

REPORT INFORMATION
  Report Type: 
  Country: None (occurrence: None)
  Receive Date: 20090625
  Receipt Date: 20090420
  Transmission Date: 20091009
  Serious: No
  Sender: FDA-Public Use
  Company Number: US-ASTRAZENECA-2009UW06271

PATIENT
  Age: 23433 Day
  Sex: Male
  Weight: 77.6 kg

DRUGS (3)
  1. ZOLADEX [Suspect]
     Indication: PROSTATE CANCER
     Dosage: 10.8 MG
     Route: 058
     Dates: start: 20090306, end: 20090311
  2. ZOLADEX [Suspect]
     Route: 058
     Dates: start: 20090311
  3. ZOMETA [Concomitant]

REACTIONS (3)
  - EXTRUSION OF DEVICE [None]
  - INJECTION SITE HAEMORRHAGE [None]
  - INJECTION SITE NODULE [None]
